FAERS Safety Report 15593637 (Version 3)
Quarter: 2020Q2

REPORT INFORMATION
  Report Type: Spontaneous
  Country: JP (occurrence: JP)
  Receive Date: 20181106
  Receipt Date: 20200619
  Transmission Date: 20200713
  Serious: Yes (Other)
  Sender: FDA-Public Use
  Company Number: JP-PFIZER INC-2018448202

PATIENT
  Age: 45 Year
  Sex: Female

DRUGS (15)
  1. RIFABUTIN. [Suspect]
     Active Substance: RIFABUTIN
     Dosage: UNK
     Dates: start: 201702
  2. CYCLOSERINE. [Concomitant]
     Active Substance: CYCLOSERINE
     Dosage: UNK
     Dates: start: 201702
  3. ENVIOMYCIN [Concomitant]
     Indication: TUBERCULOSIS
     Dosage: UNK
     Dates: start: 2004
  4. ETHIONAMIDE [Concomitant]
     Active Substance: ETHIONAMIDE
     Indication: TUBERCULOSIS
     Dosage: UNK
     Dates: start: 2004
  5. LINEZOLID. [Concomitant]
     Active Substance: LINEZOLID
     Indication: TUBERCULOSIS
     Dosage: UNK
     Route: 048
     Dates: start: 201702
  6. CLARITHROMYCIN. [Concomitant]
     Active Substance: CLARITHROMYCIN
     Indication: TUBERCULOSIS
     Dosage: UNK
     Dates: start: 2004
  7. SITAFLOXACIN [Concomitant]
     Active Substance: SITAFLOXACIN
     Indication: TUBERCULOSIS
     Dosage: UNK
     Dates: start: 2004
  8. DELAMANID [Concomitant]
     Active Substance: DELAMANID
     Indication: TUBERCULOSIS
     Dosage: UNK
     Dates: start: 201702
  9. CLOFAZIMINE [Concomitant]
     Active Substance: CLOFAZIMINE
     Indication: TUBERCULOSIS
     Dosage: UNK
     Dates: start: 201702
  10. MEROPENEM. [Concomitant]
     Active Substance: MEROPENEM
     Indication: TUBERCULOSIS
     Dosage: UNK
     Dates: start: 201702
  11. PROTHIONAMIDE [Concomitant]
     Active Substance: PROTIONAMIDE
     Indication: TUBERCULOSIS
     Dosage: UNK
  12. AMOXICILLIN + CLAV. POTASSIUM [Concomitant]
     Active Substance: AMOXICILLIN\CLAVULANATE POTASSIUM
     Indication: TUBERCULOSIS
     Dosage: UNK
     Dates: start: 201702
  13. RIFABUTIN. [Suspect]
     Active Substance: RIFABUTIN
     Indication: TUBERCULOSIS
     Dosage: 150 TO 300MG/DAY (3-6MG/KG/DAY)
     Route: 048
     Dates: start: 2009
  14. ENVIOMYCIN [Concomitant]
     Dosage: UNK
     Dates: start: 201702
  15. CYCLOSERINE. [Concomitant]
     Active Substance: CYCLOSERINE
     Indication: TUBERCULOSIS
     Dosage: UNK
     Dates: start: 2004

REACTIONS (4)
  - Retinal disorder [Unknown]
  - Deposit eye [Recovering/Resolving]
  - Cataract [Recovering/Resolving]
  - Optic neuropathy [Unknown]

NARRATIVE: CASE EVENT DATE: 201702
